FAERS Safety Report 10263932 (Version 1)
Quarter: 2014Q2

REPORT INFORMATION
  Report Type: Other
  Country: GB (occurrence: GB)
  Receive Date: 20140627
  Receipt Date: 20140627
  Transmission Date: 20141212
  Serious: Yes (Disabling)
  Sender: FDA-Public Use
  Company Number: GB-LUPIN PHARMACEUTICALS INC.-E2B_00001163

PATIENT
  Age: 67 Year
  Sex: Male
  Weight: 65 kg

DRUGS (9)
  1. SIMVASTATIN [Suspect]
     Indication: PRODUCT USED FOR UNKNOWN INDICATION
  2. LATANOPROST [Concomitant]
     Route: 065
     Dates: start: 20130313
  3. AMITRIPTYLINE HYDROCHLORIDE [Concomitant]
     Dates: start: 20130327
  4. AMLODIPINE [Concomitant]
     Dates: start: 20130528, end: 20130625
  5. ADCAL [Concomitant]
     Dates: start: 20130606
  6. CIALIS [Concomitant]
     Dates: start: 20130606
  7. IBUPROFEN [Concomitant]
     Dates: start: 20130627, end: 20130711
  8. PARACETAMOL [Concomitant]
     Dates: start: 20130628
  9. TRANSVASIN [Concomitant]
     Dates: start: 20130628, end: 20130708

REACTIONS (3)
  - Rhabdomyolysis [Recovered/Resolved]
  - Muscular weakness [Recovered/Resolved]
  - Pain in extremity [Recovered/Resolved]
